FAERS Safety Report 10671083 (Version 6)
Quarter: 2016Q3

REPORT INFORMATION
  Report Type: Report from Study
  Country: DE (occurrence: AT)
  Receive Date: 20141223
  Receipt Date: 20160906
  Transmission Date: 20161109
  Serious: Yes (Death, Hospitalization)
  Sender: FDA-Public Use
  Company Number: DE-SA-2014SA166049

PATIENT
  Age: 70 Year
  Sex: Male
  Weight: 86 kg

DRUGS (11)
  1. CONCOR PLUS [Concomitant]
     Active Substance: BISOPROLOL FUMARATE\HYDROCHLOROTHIAZIDE
  2. THROMBO ASS [Concomitant]
     Active Substance: ASPIRIN
  3. PREDNISOLON [Concomitant]
     Active Substance: PREDNISOLONE
  4. CABAZITAXEL [Suspect]
     Active Substance: CABAZITAXEL
     Indication: PROSTATE CANCER METASTATIC
     Route: 065
     Dates: start: 20140818, end: 20140818
  5. CABAZITAXEL [Suspect]
     Active Substance: CABAZITAXEL
     Indication: PROSTATE CANCER METASTATIC
     Route: 065
     Dates: start: 20141110, end: 20141110
  6. LONQUEX [Concomitant]
     Active Substance: LIPEGFILGRASTIM
     Dates: start: 20141111
  7. ELIGARD [Concomitant]
     Active Substance: LEUPROLIDE ACETATE
  8. XGEVA [Concomitant]
     Active Substance: DENOSUMAB
  9. SEDACORON [Concomitant]
     Active Substance: AMIODARONE HYDROCHLORIDE
  10. UROSIN [Concomitant]
     Active Substance: ALLOPURINOL
  11. PREDNISOLONE. [Suspect]
     Active Substance: PREDNISOLONE
     Indication: PROSTATE CANCER METASTATIC
     Route: 065

REACTIONS (1)
  - Pneumonia [Fatal]

NARRATIVE: CASE EVENT DATE: 20141126
